FAERS Safety Report 14161289 (Version 1)
Quarter: 2017Q4

REPORT INFORMATION
  Report Type: Spontaneous
  Country: US (occurrence: US)
  Receive Date: 20171104
  Receipt Date: 20171104
  Transmission Date: 20180321
  Serious: Yes (Life-Threatening, Disabling, Other)
  Sender: FDA-Public Use
  Company Number: None

PATIENT
  Age: 37 Year
  Sex: Male
  Weight: 76.5 kg

DRUGS (5)
  1. GABAPENTIN. [Suspect]
     Active Substance: GABAPENTIN
     Indication: DRUG WITHDRAWAL SYNDROME
     Dosage: ?          QUANTITY:1 TABLET(S);?
     Route: 048
     Dates: start: 20161101, end: 20171104
  2. ST. JOHN^S WORT [Concomitant]
     Active Substance: ST. JOHN^S WORT
  3. WELLBUTRIN XL [Concomitant]
     Active Substance: BUPROPION HYDROCHLORIDE
  4. ADDERALL XR [Concomitant]
     Active Substance: AMPHETAMINE ASPARTATE\AMPHETAMINE SULFATE\DEXTROAMPHETAMINE SACCHARATE\DEXTROAMPHETAMINE SULFATE
  5. GABAPENTIN. [Suspect]
     Active Substance: GABAPENTIN
     Indication: ANXIETY
     Dosage: ?          QUANTITY:1 TABLET(S);?
     Route: 048
     Dates: start: 20161101, end: 20171104

REACTIONS (19)
  - Intrusive thoughts [None]
  - Abdominal pain upper [None]
  - Blood testosterone decreased [None]
  - Decreased appetite [None]
  - Gait disturbance [None]
  - Cough [None]
  - Restlessness [None]
  - Dyspnoea [None]
  - Hyperhidrosis [None]
  - Hypogonadism [None]
  - Flushing [None]
  - Insomnia [None]
  - Wheezing [None]
  - Tremor [None]
  - Panic attack [None]
  - Agoraphobia [None]
  - Fear of crowded places [None]
  - Apathy [None]
  - Depression [None]

NARRATIVE: CASE EVENT DATE: 20161101
